FAERS Safety Report 6306255-0 (Version None)
Quarter: 2009Q3

REPORT INFORMATION
  Report Type: 
  Country: None (occurrence: None)
  Receive Date: 20090812
  Receipt Date: 20090731
  Transmission Date: 20100115
  Serious: Yes (Other)
  Sender: FDA-Public Use
  Company Number: PHHY2009IE23623

PATIENT
  Sex: Male

DRUGS (7)
  1. CLOZARIL [Suspect]
     Indication: SCHIZOPHRENIA
     Dosage: UNK
     Dates: start: 20080926
  2. CLOZARIL [Suspect]
     Dosage: 100 MG IN THE AFTERNOON AND 200 MG AT NIGHT
  3. SERTRALINE [Concomitant]
     Indication: DEPRESSION
     Dosage: 200 MG, UNK
     Route: 048
  4. ASPIRIN [Concomitant]
     Indication: MYOCARDIAL ISCHAEMIA
     Dosage: 150 MG, UNK
     Route: 048
  5. LANSOPRAZOLE [Concomitant]
     Indication: PROPHYLAXIS
     Dosage: 30 MG MANE
     Route: 048
  6. MIDODRINE [Concomitant]
     Indication: HYPOTENSION
     Dosage: 10 MG, TID
     Route: 048
  7. ALENDRONATE SODIUM [Concomitant]
     Indication: OSTEOPOROSIS
     Dosage: 70MG WEEKLY
     Route: 048

REACTIONS (3)
  - GRAND MAL CONVULSION [None]
  - PYREXIA [None]
  - URINARY TRACT INFECTION [None]
